FAERS Safety Report 4494038-6 (Version None)
Quarter: 2004Q4

REPORT INFORMATION
  Report Type: 
  Country: None (occurrence: None)
  Receive Date: 20041103
  Receipt Date: 20041103
  Transmission Date: 20050328
  Serious: No
  Sender: FDA-Public Use
  Company Number: None

PATIENT
  Sex: Female
  Weight: 63.5036 kg

DRUGS (2)
  1. NITRO-DUR [Suspect]
     Indication: ATRIAL FIBRILLATION
     Dosage: 1 X A DAY
  2. BUSPAR [Suspect]
     Indication: DEMENTIA
     Dosage: 2 X A DAY

REACTIONS (4)
  - ALOPECIA [None]
  - DIARRHOEA [None]
  - PHARMACEUTICAL PRODUCT COMPLAINT [None]
  - RASH [None]
